FAERS Safety Report 13609862 (Version 3)
Quarter: 2017Q2

REPORT INFORMATION
  Report Type: Report from Study
  Country: CZ (occurrence: CZ)
  Receive Date: 20170603
  Receipt Date: 20170621
  Transmission Date: 20170830
  Serious: Yes (Hospitalization, Disabling, Other)
  Sender: FDA-Public Use
  Company Number: CZ-B.I. PHARMACEUTICALS,INC./RIDGEFIELD-2017-BI-003579

PATIENT
  Age: 76 Year
  Sex: Male
  Weight: 85 kg

DRUGS (6)
  1. DABIGATRAN [Suspect]
     Active Substance: DABIGATRAN
     Indication: CORONARY ARTERY DISEASE
  2. DABIGATRAN [Suspect]
     Active Substance: DABIGATRAN
     Indication: ATRIAL FIBRILLATION
     Route: 048
     Dates: start: 20160420, end: 20170425
  3. SORTIS [Concomitant]
     Active Substance: ATORVASTATIN
     Indication: DYSLIPIDAEMIA
     Route: 048
     Dates: start: 20160417
  4. ZENARO [Concomitant]
     Indication: RASH
     Route: 048
     Dates: start: 201601
  5. PRESTARIUM NEO [Concomitant]
     Active Substance: PERINDOPRIL ARGININE
     Indication: PERIPHERAL ARTERIAL OCCLUSIVE DISEASE
     Dosage: STRENGTH AND DAILY DOSE: 5/1.25MG
     Route: 048
     Dates: start: 20160422
  6. BELOGENT UNG [Concomitant]
     Indication: RASH
     Dosage: DOSE: TOPICAL UNG
     Route: 061
     Dates: start: 201601

REACTIONS (4)
  - Bronchial carcinoma [Not Recovered/Not Resolved]
  - Chest pain [Not Recovered/Not Resolved]
  - Small cell lung cancer [Not Recovered/Not Resolved]
  - Chest pain [Not Recovered/Not Resolved]

NARRATIVE: CASE EVENT DATE: 201701
